FAERS Safety Report 4425297-3 (Version None)
Quarter: 2004Q3

REPORT INFORMATION
  Report Type: 
  Country: None (occurrence: None)
  Receive Date: 20040813
  Receipt Date: 20040730
  Transmission Date: 20050211
  Serious: Yes (Other)
  Sender: FDA-Public Use
  Company Number: US-BRISTOL-MYERS SQUIBB COMPANY-12669891

PATIENT
  Age: 74 Year
  Sex: Female

DRUGS (1)
  1. AVALIDE [Suspect]
     Dosage: 150/12.5MG TABLET
     Route: 048

REACTIONS (1)
  - PEMPHIGOID [None]
